FAERS Safety Report 8062670-9 (Version None)
Quarter: 2012Q1

REPORT INFORMATION
  Report Type: 
  Country: None (occurrence: None)
  Receive Date: 20120123
  Receipt Date: 20120120
  Transmission Date: 20120608
  Serious: Yes (Hospitalization)
  Sender: FDA-Public Use
  Company Number: IT-SANOFI-AVENTIS-2012SA003272

PATIENT
  Age: 67 Year
  Sex: Female

DRUGS (8)
  1. ALL OTHER THERAPEUTIC PRODUCTS [Suspect]
     Indication: RHEUMATOID ARTHRITIS
     Route: 048
     Dates: start: 20111127
  2. MISOPROSTOL [Concomitant]
  3. BISOPROLOL FUMARATE [Concomitant]
     Route: 048
  4. LASIX [Suspect]
     Indication: OEDEMA
     Route: 048
     Dates: start: 20090101
  5. CLOPIDOGREL BISULFATE [Suspect]
     Route: 048
     Dates: start: 20090101
  6. DELORAZEPAM [Suspect]
     Indication: ANXIETY
     Route: 048
     Dates: start: 20100101
  7. DEFLAZACORT [Concomitant]
     Indication: RHEUMATOID ARTHRITIS
     Route: 048
  8. NITROGLYCERIN [Concomitant]
     Indication: ANGINA PECTORIS
     Route: 062

REACTIONS (2)
  - CONFUSIONAL STATE [None]
  - HALLUCINATION, VISUAL [None]
